FAERS Safety Report 15677936 (Version 1)
Quarter: 2018Q4

REPORT INFORMATION
  Report Type: Report from Study
  Country: GB (occurrence: GB)
  Receive Date: 20181130
  Receipt Date: 20181130
  Transmission Date: 20190205
  Serious: Yes (Other)
  Sender: FDA-Public Use
  Company Number: GB-GILEAD-2018-0376448

PATIENT

DRUGS (2)
  1. EMTRICITABINE/TENOFOVIR DISOPROXIL FUMARATE [Suspect]
     Active Substance: EMTRICITABINE\TENOFOVIR DISOPROXIL FUMARATE
     Indication: HIV INFECTION
     Dosage: 300/200MG QD
     Route: 048
  2. DOLUTEGRAVIR [Concomitant]
     Active Substance: DOLUTEGRAVIR

REACTIONS (7)
  - Cholelithiasis [Unknown]
  - Hepatotoxicity [Unknown]
  - Psychotic disorder [Unknown]
  - Substance-induced psychotic disorder [Unknown]
  - Rhabdomyolysis [Unknown]
  - Suicidal ideation [Unknown]
  - Suicide attempt [Unknown]
